FAERS Safety Report 8505936-8 (Version None)
Quarter: 2012Q3

REPORT INFORMATION
  Report Type: 
  Country: None (occurrence: None)
  Receive Date: 20120712
  Receipt Date: 20120703
  Transmission Date: 20120928
  Serious: Yes (Hospitalization)
  Sender: FDA-Public Use
  Company Number: US-GLAXOSMITHKLINE-A0806440A

PATIENT
  Age: 54 Year
  Sex: Male
  Weight: 110.9 kg

DRUGS (1)
  1. AVANDIA [Suspect]
     Indication: TYPE 2 DIABETES MELLITUS
     Dosage: 4MG TWICE PER DAY
     Route: 048
     Dates: start: 20000201, end: 20030301

REACTIONS (3)
  - MYOCARDIAL INFARCTION [None]
  - ANXIETY [None]
  - HEART INJURY [None]
